FAERS Safety Report 25400485 (Version 1)
Quarter: 2025Q2

REPORT INFORMATION
  Report Type: Spontaneous
  Country: US (occurrence: US)
  Receive Date: 20250605
  Receipt Date: 20250605
  Transmission Date: 20250716
  Serious: Yes (Other)
  Sender: BRISTOL-MYERS SQUIBB COMPANY
  Company Number: US-BRISTOL-MYERS SQUIBB COMPANY-2025-079790

PATIENT
  Age: 80 Year
  Sex: Female

DRUGS (2)
  1. ORENCIA [Suspect]
     Active Substance: ABATACEPT
     Indication: Rheumatoid arthritis
     Dosage: EVERY 7 DAYS, UNDER THE SKIN
     Route: 058
     Dates: start: 201911
  2. OCALIVA [Concomitant]
     Active Substance: OBETICHOLIC ACID
     Indication: Product used for unknown indication

REACTIONS (4)
  - Taste disorder [Unknown]
  - Weight decreased [Unknown]
  - Essential tremor [Unknown]
  - Parkinsonism [Not Recovered/Not Resolved]
